FAERS Safety Report 20814279 (Version 2)
Quarter: 2022Q4

REPORT INFORMATION
  Report Type: Spontaneous
  Country: US (occurrence: US)
  Receive Date: 20220511
  Receipt Date: 20221121
  Transmission Date: 20230113
  Serious: Yes (Other)
  Sender: FDA-Public Use
  Company Number: US-ORPHANEU-2022001792

PATIENT

DRUGS (7)
  1. SIGNIFOR LAR [Suspect]
     Active Substance: PASIREOTIDE PAMOATE
     Indication: Pituitary-dependent Cushing^s syndrome
     Dosage: 60 MILLIGRAM, EVERY 28 DAYS
     Route: 030
     Dates: start: 202102
  2. SIGNIFOR LAR [Suspect]
     Active Substance: PASIREOTIDE PAMOATE
     Indication: Pituitary tumour
  3. PROGESTERONE [Suspect]
     Active Substance: PROGESTERONE
     Indication: Menstrual disorder
     Dosage: 200 MILLIGRAM
     Dates: start: 2022, end: 2022
  4. BENZYL ALCOHOL\ESTRADIOL UNDECYLATE\TESTOSTERONE PHENYLPROPIONATE [Suspect]
     Active Substance: BENZYL ALCOHOL\ESTRADIOL UNDECYLATE\TESTOSTERONE PHENYLPROPIONATE
     Indication: Product used for unknown indication
     Dosage: 0.65-125 (UNITS UNSPECIFIED), DAILY
     Dates: start: 2022, end: 2022
  5. HYDROCORTISONE [Concomitant]
     Active Substance: HYDROCORTISONE
     Indication: Hormone replacement therapy
     Dosage: 10 MILLIGRAM, EVERY MORNING
     Dates: start: 2018
  6. FLUDROCORTISONE [Concomitant]
     Active Substance: FLUDROCORTISONE
     Indication: Hormone replacement therapy
     Dosage: 0.1 MILLIGRAM, QD
     Dates: start: 2018
  7. VALGANCICLOVIR [Concomitant]
     Active Substance: VALGANCICLOVIR
     Indication: Oral herpes
     Dosage: 450 MILLIGRAM, PRN
     Dates: start: 2020

REACTIONS (3)
  - Malignant neoplasm progression [Recovering/Resolving]
  - Off label use [Recovered/Resolved]
  - Prescribed overdose [Recovered/Resolved]

NARRATIVE: CASE EVENT DATE: 20210201
